FAERS Safety Report 7482134-0 (Version None)
Quarter: 2011Q2

REPORT INFORMATION
  Report Type: 
  Country: None (occurrence: None)
  Receive Date: 20110516
  Receipt Date: 20110511
  Transmission Date: 20111010
  Serious: Yes (Other)
  Sender: FDA-Public Use
  Company Number: US-PFIZER INC-2007036329

PATIENT
  Sex: Female

DRUGS (6)
  1. NEURONTIN [Suspect]
     Indication: FALL
     Dosage: 300 MG, UNK
     Dates: start: 20030101
  2. NEURONTIN [Suspect]
     Indication: PAIN IN EXTREMITY
  3. NEURONTIN [Suspect]
     Indication: NECK PAIN
  4. NEURONTIN [Suspect]
     Indication: DEPRESSION
  5. NEURONTIN [Suspect]
     Indication: ANXIETY
  6. NEURONTIN [Suspect]
     Indication: BACK PAIN

REACTIONS (9)
  - DEPRESSION [None]
  - DRUG INEFFECTIVE FOR UNAPPROVED INDICATION [None]
  - HEADACHE [None]
  - PARANOIA [None]
  - AMNESIA [None]
  - SUICIDAL IDEATION [None]
  - THINKING ABNORMAL [None]
  - FEELING ABNORMAL [None]
  - DECREASED INTEREST [None]
